FAERS Safety Report 9231793 (Version 1)
Quarter: 2013Q2

REPORT INFORMATION
  Report Type: Spontaneous
  Country: US (occurrence: US)
  Receive Date: 20130415
  Receipt Date: 20130415
  Transmission Date: 20140414
  Serious: No
  Sender: FDA-Public Use
  Company Number: US-TEVA-397868USA

PATIENT
  Age: 21 Year
  Sex: Female
  Weight: 73.09 kg

DRUGS (2)
  1. QNASL [Suspect]
     Indication: HYPERSENSITIVITY
     Route: 045
     Dates: start: 20130409
  2. ASTEPRO [Concomitant]
     Indication: HYPERSENSITIVITY
     Dosage: 0.5

REACTIONS (3)
  - Eye irritation [Not Recovered/Not Resolved]
  - Nasal discomfort [Not Recovered/Not Resolved]
  - Wrong technique in drug usage process [Unknown]
